FAERS Safety Report 9600331 (Version 2)
Quarter: 2013Q4

REPORT INFORMATION
  Report Type: Spontaneous
  Country: US (occurrence: US)
  Receive Date: 20131004
  Receipt Date: 20131004
  Transmission Date: 20140711
  Serious: No
  Sender: FDA-Public Use
  Company Number: US-AMGEN-USASP2013021164

PATIENT
  Age: 34 Year
  Sex: Female
  Weight: 61.22 kg

DRUGS (9)
  1. ENBREL [Suspect]
     Indication: RHEUMATOID ARTHRITIS
     Dosage: 50 MG, QWK
     Route: 058
  2. CHONDROITIN W/GLUCOSAMINE          /02118501/ [Concomitant]
     Dosage: UNK
  3. SULFASALAZIN [Concomitant]
     Dosage: 500 MG, UNK
     Route: 041
  4. FOLIC ACID [Concomitant]
     Dosage: UNK
  5. MULTIVITAMINS, PLAIN [Concomitant]
     Dosage: UNK
  6. CALCIUM [Concomitant]
     Dosage: 500 UNK, UNK
  7. ALEVE [Concomitant]
     Dosage: 220 MG, UNK
  8. FISH OIL [Concomitant]
     Dosage: UNK
  9. METHOTREXATE [Concomitant]
     Dosage: 2.5 MG, UNK

REACTIONS (1)
  - Drug ineffective [Unknown]
